FAERS Safety Report 8461457-2 (Version None)
Quarter: 2012Q2

REPORT INFORMATION
  Report Type: 
  Country: None (occurrence: None)
  Receive Date: 20120625
  Receipt Date: 20120618
  Transmission Date: 20120825
  Serious: Yes (Other)
  Sender: FDA-Public Use
  Company Number: US-PFIZER INC-2012124733

PATIENT
  Sex: Female
  Weight: 63.946 kg

DRUGS (12)
  1. HYDROCORTISONE [Concomitant]
     Dosage: 2.5 %, AS NEEDED
     Route: 061
  2. FLOVENT [Concomitant]
     Dosage: 220 UG, AS NEEDED
     Route: 055
  3. DIOVAN [Concomitant]
     Dosage: 160 MG, UNK
     Route: 048
  4. SYNTHROID [Concomitant]
     Dosage: 50 UG, UNK
     Route: 048
  5. ALPRAZOLAM [Concomitant]
     Dosage: 500 MG, UNK
     Route: 048
  6. ALDACTONE [Concomitant]
     Dosage: 50 MG, UNK
     Route: 048
  7. ONDANSETRON HYDROCHLORIDE [Concomitant]
     Dosage: 500 MG, AS NEEDED
     Route: 048
  8. ALLEGRA [Concomitant]
     Dosage: 150 MG, UNK
  9. LEVOXYL [Concomitant]
     Indication: HYPERTHYROIDISM
     Dosage: UNK
  10. PROAIR HFA [Concomitant]
     Dosage: 108 UG, AS NEEDED
     Route: 055
  11. XALKORI [Suspect]
     Indication: LUNG CANCER METASTATIC
     Dosage: 250 MG, 2X/DAY
     Route: 048
     Dates: start: 20111120, end: 20120516
  12. CHLORHEXIDINE GLUCONATE [Concomitant]
     Dosage: 0.12 %, UNK

REACTIONS (2)
  - ABDOMINAL DISCOMFORT [None]
  - HEPATOTOXICITY [None]
